FAERS Safety Report 7897787-2 (Version None)
Quarter: 2011Q4

REPORT INFORMATION
  Report Type: 
  Country: None (occurrence: None)
  Receive Date: 20111107
  Receipt Date: 20111024
  Transmission Date: 20120403
  Serious: Yes (Other)
  Sender: FDA-Public Use
  Company Number: US-ROCHE-1009052

PATIENT

DRUGS (4)
  1. MYCOPHENOLATE MOFETIL (CELLCEPT) [Suspect]
     Indication: FOCAL SEGMENTAL GLOMERULOSCLEROSIS
  2. LISINOPRIL [Concomitant]
  3. PREDNISONE [Concomitant]
     Indication: FOCAL SEGMENTAL GLOMERULOSCLEROSIS
  4. DEXAMETHASONE [Suspect]
     Indication: FOCAL SEGMENTAL GLOMERULOSCLEROSIS

REACTIONS (1)
  - GASTROINTESTINAL TOXICITY [None]
